FAERS Safety Report 7170757-8 (Version None)
Quarter: 2010Q4

REPORT INFORMATION
  Report Type: 
  Country: None (occurrence: None)
  Receive Date: 20101217
  Receipt Date: 20101210
  Transmission Date: 20110411
  Serious: Yes (Other)
  Sender: FDA-Public Use
  Company Number: US-ABBOTT-10P-163-0690991-00

PATIENT
  Sex: Male
  Weight: 80.812 kg

DRUGS (6)
  1. HUMIRA [Suspect]
     Indication: CROHN'S DISEASE
     Dosage: CLARIFIED 80MG AS LOADING DOSE, AND CONTINUED SINCE WITH 80MG EOW
     Route: 058
     Dates: start: 20100520, end: 20100929
  2. HUMIRA [Suspect]
     Dosage: SKIPPED 2 INJECTIONS DUE TO INFECTION.
     Route: 058
     Dates: start: 20101112
  3. IRON SUPPLEMENT [Concomitant]
     Indication: CROHN'S DISEASE
  4. FOLIC ACID [Concomitant]
     Indication: CROHN'S DISEASE
  5. MULTI-VITAMIN [Concomitant]
     Indication: PRODUCT USED FOR UNKNOWN INDICATION
  6. PREDNISONE [Concomitant]
     Indication: CROHN'S DISEASE
     Dates: end: 20100901

REACTIONS (4)
  - ACNE [None]
  - ECZEMA HERPETICUM [None]
  - FURUNCLE [None]
  - SKIN LESION [None]
